FAERS Safety Report 14692355 (Version 1)
Quarter: 2018Q1

REPORT INFORMATION
  Report Type: Spontaneous
  Country: US (occurrence: US)
  Receive Date: 20180329
  Receipt Date: 20180329
  Transmission Date: 20180509
  Serious: No
  Sender: FDA-Public Use
  Company Number: US-TEVA-2018-US-858841

PATIENT
  Age: 47 Year
  Sex: Female

DRUGS (4)
  1. ZYPREXA [Concomitant]
     Active Substance: OLANZAPINE
     Indication: HUNTINGTON^S DISEASE
  2. CLONAZEPAM. [Concomitant]
     Active Substance: CLONAZEPAM
  3. AUSTEDO [Suspect]
     Active Substance: DEUTETRABENAZINE
     Dosage: 96 MILLIGRAM DAILY; CURRENT DOSE
  4. AUSTEDO [Suspect]
     Active Substance: DEUTETRABENAZINE
     Dosage: 72 MILLIGRAM DAILY; INITIAL DOSE

REACTIONS (2)
  - Incorrect dose administered [Unknown]
  - Somnolence [Unknown]
